FAERS Safety Report 7494829-3 (Version None)
Quarter: 2011Q2

REPORT INFORMATION
  Report Type: 
  Country: None (occurrence: None)
  Receive Date: 20110520
  Receipt Date: 20110516
  Transmission Date: 20111010
  Serious: Yes (Other)
  Sender: FDA-Public Use
  Company Number: B0711421A

PATIENT
  Sex: Male
  Weight: 50 kg

DRUGS (7)
  1. PHENOBAL [Concomitant]
     Indication: EPILEPSY
     Route: 048
  2. BENZALIN [Concomitant]
     Indication: EPILEPSY
     Route: 048
  3. LAMICTAL [Suspect]
     Indication: EPILEPSY
     Dosage: 25MG ALTERNATE DAYS
     Route: 048
     Dates: start: 20110214, end: 20110404
  4. DIAMOX [Concomitant]
     Indication: EPILEPSY
     Route: 048
  5. UNKNOWN DRUG [Concomitant]
     Route: 048
  6. DEPAKENE [Concomitant]
     Indication: EPILEPSY
     Route: 048
  7. HYDANTOL [Concomitant]
     Indication: EPILEPSY
     Route: 048

REACTIONS (16)
  - EXCORIATION [None]
  - HAEMOGLOBIN INCREASED [None]
  - ERYTHEMA [None]
  - WHITE BLOOD CELL COUNT INCREASED [None]
  - OEDEMA MUCOSAL [None]
  - PYREXIA [None]
  - PENILE SWELLING [None]
  - RED BLOOD CELL COUNT INCREASED [None]
  - RASH [None]
  - PENILE ERYTHEMA [None]
  - STEVENS-JOHNSON SYNDROME [None]
  - PLATELET COUNT INCREASED [None]
  - HAEMATOCRIT INCREASED [None]
  - MUCOSAL HYPERAEMIA [None]
  - SKIN EROSION [None]
  - ORAL MUCOSAL ERYTHEMA [None]
